FAERS Safety Report 6644128-4 (Version None)
Quarter: 2010Q1

REPORT INFORMATION
  Report Type: 
  Country: None (occurrence: None)
  Receive Date: 20100304
  Receipt Date: 20091201
  Transmission Date: 20100710
  Serious: Yes (Other)
  Sender: FDA-Public Use
  Company Number: 20091201CINRY1290

PATIENT
  Age: 63 Year
  Sex: Female
  Weight: 48.0813 kg

DRUGS (2)
  1. CINRYZE [Suspect]
     Indication: HEREDITARY ANGIOEDEMA
     Dosage: (1000 UNIT, 2 IN 1 WK), INTRAVENOUS
     Route: 042
  2. CINRYZE [Suspect]
     Indication: PROPHYLAXIS
     Dosage: (1000 UNIT, 2 IN 1 WK), INTRAVENOUS
     Route: 042

REACTIONS (2)
  - HEREDITARY ANGIOEDEMA [None]
  - LOSS OF CONSCIOUSNESS [None]
